FAERS Safety Report 5361866-4 (Version None)
Quarter: 2007Q2

REPORT INFORMATION
  Report Type: 
  Country: None (occurrence: None)
  Receive Date: 20070619
  Receipt Date: 20070613
  Transmission Date: 20071010
  Serious: Yes (Life-Threatening, Hospitalization, Other)
  Sender: FDA-Public Use
  Company Number: PHNU2006DE03968

PATIENT
  Age: 12 Year
  Sex: Male
  Weight: 30 kg

DRUGS (1)
  1. TEGRETOL [Suspect]
     Indication: PARTIAL SEIZURES
     Dosage: 200-0-300 MG/DAY
     Route: 048
     Dates: start: 20050415

REACTIONS (8)
  - BIOPSY HEART ABNORMAL [None]
  - CONVULSION [None]
  - IMPLANTABLE DEFIBRILLATOR INSERTION [None]
  - MYOCARDITIS [None]
  - RESTRICTIVE CARDIOMYOPATHY [None]
  - SYNCOPE [None]
  - VENTRICULAR FIBRILLATION [None]
  - VENTRICULAR HYPERTROPHY [None]
